FAERS Safety Report 5374263-2 (Version None)
Quarter: 2007Q2

REPORT INFORMATION
  Report Type: 
  Country: None (occurrence: None)
  Receive Date: 20070629
  Receipt Date: 20041103
  Transmission Date: 20071010
  Serious: Yes (Hospitalization)
  Sender: FDA-Public Use
  Company Number: US-ROCHE-264387

PATIENT
  Sex: Male

DRUGS (9)
  1. MYCOPHENOLATE MOFETIL [Suspect]
     Indication: SYSTEMIC LUPUS ERYTHEMATOSUS
     Route: 048
     Dates: start: 20010403
  2. MYCOPHENOLATE MOFETIL [Suspect]
     Route: 048
     Dates: start: 20010501
  3. MYCOPHENOLATE MOFETIL [Suspect]
     Route: 048
     Dates: end: 20010620
  4. MYCOPHENOLATE MOFETIL [Suspect]
     Route: 048
     Dates: end: 20010709
  5. MYCOPHENOLATE MOFETIL [Suspect]
     Route: 048
  6. MYCOPHENOLATE MOFETIL [Suspect]
     Route: 048
     Dates: start: 20010709
  7. MYCOPHENOLATE MOFETIL [Suspect]
     Route: 048
     Dates: start: 20010716
  8. CYCLOPHOSPHAMIDE [Suspect]
     Indication: SYSTEMIC LUPUS ERYTHEMATOSUS
     Route: 042
  9. MEDROL [Concomitant]
     Dates: start: 20010716

REACTIONS (4)
  - DEHYDRATION [None]
  - NON-CARDIAC CHEST PAIN [None]
  - PYREXIA [None]
  - SYSTEMIC LUPUS ERYTHEMATOSUS [None]
